FAERS Safety Report 4352653-4 (Version None)
Quarter: 2004Q2

REPORT INFORMATION
  Report Type: 
  Country: None (occurrence: None)
  Receive Date: 20040429
  Receipt Date: 20040415
  Transmission Date: 20050107
  Serious: Yes (Hospitalization)
  Sender: FDA-Public Use
  Company Number: 2004-UK-00266UK

PATIENT
  Age: 32 Year
  Sex: Male

DRUGS (4)
  1. NEVIRAPINE (EU/1/97/055/001) (NEVIRAPINE) (TA) [Suspect]
     Indication: HIV INFECTION
     Dosage: 200 MG PO
     Route: 048
     Dates: start: 20030601
  2. BACTRIM [Suspect]
     Indication: PNEUMOCYSTIS CARINII PNEUMONIA
  3. PREDNISOLONE [Concomitant]
  4. COMBIVIR [Concomitant]

REACTIONS (4)
  - ALANINE AMINOTRANSFERASE INCREASED [None]
  - PNEUMOCYSTIS CARINII PNEUMONIA [None]
  - STEVENS-JOHNSON SYNDROME [None]
  - VARICELLA [None]
